FAERS Safety Report 8108144-8 (Version None)
Quarter: 2012Q1

REPORT INFORMATION
  Report Type: 
  Country: None (occurrence: None)
  Receive Date: 20120202
  Receipt Date: 20120124
  Transmission Date: 20120608
  Serious: Yes (Hospitalization)
  Sender: FDA-Public Use
  Company Number: US-ASTRAZENECA-2011SE78577

PATIENT
  Age: 27609 Day
  Sex: Male
  Weight: 75.7 kg

DRUGS (25)
  1. CADUET [Suspect]
     Dosage: 10/20 MG ONCE A DAY
     Route: 048
     Dates: start: 20111128
  2. LEVOTHYROXINE SODIUM [Concomitant]
     Route: 065
     Dates: start: 20070101
  3. VALIUM [Concomitant]
     Route: 065
     Dates: start: 20040101
  4. ATACAND [Suspect]
     Route: 048
     Dates: start: 20110425, end: 20110927
  5. CADUET [Suspect]
     Dosage: 10/20 MG ONCE A DAY
     Route: 048
     Dates: start: 20111128
  6. ACETAMINOPHEN [Concomitant]
     Route: 065
  7. SENNA [Concomitant]
     Route: 065
     Dates: start: 20110601
  8. GABAPENTIN [Concomitant]
     Route: 065
     Dates: start: 20090616
  9. GABAPENTIN [Concomitant]
     Route: 065
     Dates: start: 20111018
  10. LIPITOR [Concomitant]
     Route: 065
     Dates: start: 20110427
  11. ATACAND [Suspect]
     Route: 048
     Dates: start: 20110928
  12. SPIRIVA [Concomitant]
     Route: 065
     Dates: start: 20101019
  13. CLONIDINE [Concomitant]
     Route: 065
  14. OMEPRAZOLE [Concomitant]
     Route: 065
     Dates: start: 20070101
  15. HYDROCODONE BITARTRATE [Concomitant]
     Route: 065
     Dates: start: 19670101
  16. OXYCODONE HCL [Concomitant]
     Route: 065
     Dates: start: 20110601
  17. MIDODRINE HYDROCHLORIDE [Concomitant]
     Route: 065
     Dates: start: 20110601
  18. COUMADIN [Concomitant]
     Route: 065
     Dates: start: 20110601
  19. BISCODYL SUPPOSITORY [Concomitant]
     Route: 065
  20. COLCHICINE [Concomitant]
     Route: 065
     Dates: start: 20111018
  21. ATACAND [Suspect]
     Indication: HYPERTENSION
     Route: 048
     Dates: start: 20081120, end: 20110406
  22. CADUET [Suspect]
     Indication: HYPERTENSION
     Dosage: 10/20 MG ONCE A DAY
     Route: 048
     Dates: start: 20090320, end: 20110329
  23. CADUET [Suspect]
     Indication: HYPERLIPIDAEMIA
     Dosage: 10/20 MG ONCE A DAY
     Route: 048
     Dates: start: 20090320, end: 20110329
  24. FLOMAX [Concomitant]
     Route: 065
     Dates: start: 20110601
  25. PRILOSEC [Concomitant]
     Route: 065
     Dates: start: 20111018

REACTIONS (1)
  - LOSS OF CONSCIOUSNESS [None]
